FAERS Safety Report 24885836 (Version 1)
Quarter: 2025Q1

REPORT INFORMATION
  Report Type: Spontaneous
  Country: US (occurrence: US)
  Receive Date: 20250125
  Receipt Date: 20250125
  Transmission Date: 20250408
  Serious: No
  Sender: SANOFI AVENTIS
  Company Number: US-SA-2025SA023221

PATIENT
  Sex: Female

DRUGS (18)
  1. DUPIXENT [Suspect]
     Active Substance: DUPILUMAB
     Indication: Dermatitis atopic
     Dosage: 300 MG, QOW
     Route: 058
  2. CALCIUM CITRAT [Concomitant]
  3. CELECOXIB [Concomitant]
     Active Substance: CELECOXIB
  4. CHLORHEXIDINE [Concomitant]
     Active Substance: CHLORHEXIDINE
  5. ESCITALOPRAM [Concomitant]
     Active Substance: ESCITALOPRAM OXALATE
  6. LINZESS [Concomitant]
     Active Substance: LINACLOTIDE
  7. MELATONIN [Concomitant]
     Active Substance: MELATONIN
  8. MOMETASONE FUROATE [Concomitant]
     Active Substance: MOMETASONE FUROATE
  9. NITROGLYCERIN COMP. [Concomitant]
  10. STOOL SOFTENER (DOCUSATE) [Concomitant]
     Active Substance: DOCUSATE
  11. TRIAMCINOLONE [Concomitant]
     Active Substance: TRIAMCINOLONE
  12. ALBUTEROL SULFATE [Concomitant]
     Active Substance: ALBUTEROL SULFATE
  13. CLOPIDOGREL [Concomitant]
     Active Substance: CLOPIDOGREL BISULFATE
  14. GABAPENTIN [Concomitant]
     Active Substance: GABAPENTIN
  15. IBUPROFEN [Concomitant]
     Active Substance: IBUPROFEN
  16. PRAMIPEXOLE [Concomitant]
     Active Substance: PRAMIPEXOLE
  17. ROSUVASTATIN [Concomitant]
     Active Substance: ROSUVASTATIN
  18. VALSARTAN [Concomitant]
     Active Substance: VALSARTAN

REACTIONS (4)
  - Skin swelling [Not Recovered/Not Resolved]
  - Erythema [Not Recovered/Not Resolved]
  - Skin exfoliation [Not Recovered/Not Resolved]
  - Therapeutic response decreased [Unknown]
